FAERS Safety Report 4266956-5 (Version None)
Quarter: 2004Q1

REPORT INFORMATION
  Report Type: 
  Country: None (occurrence: None)
  Receive Date: 20040107
  Receipt Date: 20031223
  Transmission Date: 20041129
  Serious: Yes (Hospitalization)
  Sender: FDA-Public Use
  Company Number: 103573ISR

PATIENT
  Age: 29 Year
  Sex: Female

DRUGS (1)
  1. GLATIRAMER ACETATE [Suspect]
     Indication: MULTIPLE SCLEROSIS
     Dosage: 20 MILLIGRAM
     Route: 058
     Dates: start: 20031002, end: 20031010

REACTIONS (5)
  - ANGIONEUROTIC OEDEMA [None]
  - BRONCHOSPASM [None]
  - EYE IRRITATION [None]
  - INJECTION SITE OEDEMA [None]
  - RASH [None]
